FAERS Safety Report 7994244-X (Version None)
Quarter: 2011Q4

REPORT INFORMATION
  Report Type: 
  Country: None (occurrence: None)
  Receive Date: 20111220
  Receipt Date: 20111024
  Transmission Date: 20120403
  Serious: Yes (Hospitalization, Other)
  Sender: FDA-Public Use
  Company Number: US-NAPPMUNDI-USA-2011-0079773

PATIENT
  Sex: Male

DRUGS (3)
  1. OXYCONTIN [Suspect]
     Indication: PAIN
     Dosage: UNK
     Dates: start: 20020101, end: 20110401
  2. OXYCONTIN [Suspect]
     Indication: PAIN IN EXTREMITY
  3. OXYCONTIN [Suspect]
     Indication: BACK PAIN

REACTIONS (3)
  - PERIPHERAL ARTERIAL OCCLUSIVE DISEASE [None]
  - HOSPITALISATION [None]
  - NEUROPATHY PERIPHERAL [None]
